FAERS Safety Report 9113093 (Version 2)
Quarter: 2013Q2

REPORT INFORMATION
  Report Type: Report from Study
  Country: DE (occurrence: DE)
  Receive Date: 20130211
  Receipt Date: 20130419
  Transmission Date: 20140414
  Serious: Yes (Hospitalization)
  Sender: FDA-Public Use
  Company Number: PHHY2013DE012764

PATIENT
  Sex: Male

DRUGS (4)
  1. FTY 720 [Suspect]
     Indication: MULTIPLE SCLEROSIS
     Dosage: 0.5 MG, QD
     Route: 048
     Dates: start: 20110627
  2. VOTUM                              /03076201/ [Concomitant]
     Dosage: 10 MG, UNK
     Dates: start: 2007
  3. INEGY [Concomitant]
     Dosage: UNK UKN, UNK
     Dates: start: 2008
  4. LEVETIRACETAM [Concomitant]
     Dosage: 500 MG, UNK
     Dates: start: 20110601

REACTIONS (1)
  - Myocarditis [Recovered/Resolved]
